FAERS Safety Report 7576926-7 (Version None)
Quarter: 2011Q2

REPORT INFORMATION
  Report Type: 
  Country: None (occurrence: None)
  Receive Date: 20110628
  Receipt Date: 20110621
  Transmission Date: 20111010
  Serious: No
  Sender: FDA-Public Use
  Company Number: US-PFIZER INC-2011138586

PATIENT
  Age: 74 Year
  Sex: Female

DRUGS (6)
  1. LIPITOR [Suspect]
     Dosage: UNK
  2. CRESTOR [Suspect]
     Dosage: UNK
  3. RED YEAST RICE [Suspect]
  4. SIMVASTATIN [Suspect]
  5. FENOFIBRIC ACID [Suspect]
     Dosage: UNK
  6. FENOFIBRIC ACID [Suspect]
     Dosage: UNK

REACTIONS (2)
  - ARTHRALGIA [None]
  - BONE PAIN [None]
